FAERS Safety Report 23188557 (Version 3)
Quarter: 2024Q1

REPORT INFORMATION
  Report Type: Spontaneous
  Country: US (occurrence: US)
  Receive Date: 20231115
  Receipt Date: 20240111
  Transmission Date: 20240410
  Serious: No
  Sender: FDA-Public Use
  Company Number: US-PFIZER INC-PV202300102840

PATIENT
  Age: 66 Year
  Sex: Male
  Weight: 99.79 kg

DRUGS (1)
  1. BRAFTOVI [Suspect]
     Active Substance: ENCORAFENIB
     Indication: Rectal cancer metastatic
     Dosage: 300 MG, 1X/DAY (TAKE 4 PO QD/TAKE 4 CAPSULES W/OR WITHOUT FOOD)
     Route: 048
     Dates: start: 202306

REACTIONS (3)
  - Upper respiratory tract infection [Recovering/Resolving]
  - Nasal mucosal disorder [Unknown]
  - Off label use [Unknown]

NARRATIVE: CASE EVENT DATE: 20231101
